FAERS Safety Report 7853195-1 (Version None)
Quarter: 2011Q4

REPORT INFORMATION
  Report Type: 
  Country: None (occurrence: None)
  Receive Date: 20111026
  Receipt Date: 20111014
  Transmission Date: 20120403
  Serious: Yes (Hospitalization)
  Sender: FDA-Public Use
  Company Number: JP-MERCK-1109USA01623

PATIENT
  Age: 17 Year
  Sex: Female

DRUGS (1)
  1. MAXALT [Suspect]
     Indication: MIGRAINE
     Route: 048
     Dates: start: 20110904, end: 20110904

REACTIONS (4)
  - COMPLEX REGIONAL PAIN SYNDROME [None]
  - NECK PAIN [None]
  - CHEST DISCOMFORT [None]
  - DYSPHAGIA [None]
